APPROVED DRUG PRODUCT: MOMETASONE FUROATE
Active Ingredient: MOMETASONE FUROATE
Strength: 0.1%
Dosage Form/Route: LOTION;TOPICAL
Application: A090506 | Product #001
Applicant: GLENMARK PHARMACEUTICALS LTD
Approved: Aug 9, 2010 | RLD: No | RS: No | Type: DISCN